FAERS Safety Report 7692106-9 (Version None)
Quarter: 2011Q3

REPORT INFORMATION
  Report Type: 
  Country: None (occurrence: None)
  Receive Date: 20110818
  Receipt Date: 20110815
  Transmission Date: 20111222
  Serious: Yes (Death)
  Sender: FDA-Public Use
  Company Number: US-ABBOTT-07P-163-0358710-00

PATIENT
  Sex: Female

DRUGS (2)
  1. CLARITHROMYCIN [Suspect]
     Indication: GASTRIC INFECTION
     Route: 048
     Dates: start: 20050519
  2. METHADONE HYDROCHLORIDE [Interacting]
     Indication: PRODUCT USED FOR UNKNOWN INDICATION

REACTIONS (4)
  - EMOTIONAL DISTRESS [None]
  - DRUG INTERACTION [None]
  - PAIN [None]
  - TOXICITY TO VARIOUS AGENTS [None]
